FAERS Safety Report 15699390 (Version 1)
Quarter: 2018Q4

REPORT INFORMATION
  Report Type: Spontaneous
  Country: US (occurrence: US)
  Receive Date: 20181126
  Receipt Date: 20181126
  Transmission Date: 20190205
  Serious: No
  Sender: FDA-Public Use
  Company Number: None

PATIENT
  Age: 62 Year
  Sex: Male

DRUGS (1)
  1. LIDOCAINE HCL 1% [Suspect]
     Active Substance: LIDOCAINE HYDROCHLORIDE
     Indication: BIOPSY SKIN
     Dosage: 0.5 CCC INTRALESIONAL
     Dates: start: 20180926

REACTIONS (4)
  - Injection site pruritus [None]
  - Eschar [None]
  - Injection site pain [None]
  - Product quality issue [None]

NARRATIVE: CASE EVENT DATE: 20180926
